FAERS Safety Report 21972140 (Version 2)
Quarter: 2023Q1

REPORT INFORMATION
  Report Type: Spontaneous
  Country: GB (occurrence: None)
  Receive Date: 20230209
  Receipt Date: 20230228
  Transmission Date: 20230417
  Serious: Yes (Other)
  Sender: FDA-Public Use
  Company Number: 2023A029721

PATIENT
  Age: 81 Year
  Sex: Female
  Weight: 90 kg

DRUGS (9)
  1. DAPAGLIFLOZIN [Suspect]
     Active Substance: DAPAGLIFLOZIN
     Indication: Diabetes mellitus
     Route: 048
     Dates: start: 20220821
  2. BENDROFLUMETHIAZIDE [Concomitant]
     Active Substance: BENDROFLUMETHIAZIDE
     Dosage: 1 EACH MORNING
     Dates: start: 20220721
  3. DICLOFENAC SODIUM [Concomitant]
     Active Substance: DICLOFENAC SODIUM
     Dosage: 1
     Dates: start: 20220721
  4. HUMULIN L [Concomitant]
     Active Substance: INSULIN HUMAN
     Dosage: USE AS DIRECTED
     Dates: start: 20220721
  5. LACIDIPINE [Concomitant]
     Active Substance: LACIDIPINE
     Dosage: 1
     Dates: start: 20220721
  6. LANSOPRAZOLE [Concomitant]
     Active Substance: LANSOPRAZOLE
     Dosage: 1
     Dates: start: 20220721
  7. LINAGLIPTIN [Concomitant]
     Active Substance: LINAGLIPTIN
     Dosage: 1
     Dates: start: 20220721
  8. SIMVASTATIN [Concomitant]
     Active Substance: SIMVASTATIN
     Dosage: 1 AT NIGHT
     Dates: start: 20220721
  9. ZOPICLONE [Concomitant]
     Active Substance: ZOPICLONE
     Dosage: TAKE HALF TO ONE AT NIGHT AS REQUIRED
     Dates: start: 20220118

REACTIONS (2)
  - Myalgia [Recovered/Resolved]
  - Lethargy [Recovered/Resolved]

NARRATIVE: CASE EVENT DATE: 20230201
